FAERS Safety Report 4511298-3 (Version None)
Quarter: 2004Q4

REPORT INFORMATION
  Report Type: 
  Country: None (occurrence: None)
  Receive Date: 20041122
  Receipt Date: 20041109
  Transmission Date: 20050328
  Serious: Yes (Hospitalization)
  Sender: FDA-Public Use
  Company Number: K200401734

PATIENT
  Sex: Female

DRUGS (1)
  1. PREFEST    (ESTRADIOL, NORGESTIMATE) [Suspect]
     Indication: HORMONE REPLACEMENT THERAPY
     Dosage: 1 TABLET, QD, ORAL
     Route: 048

REACTIONS (2)
  - HYPERSENSITIVITY [None]
  - MEASLES [None]
